FAERS Safety Report 23503739 (Version 1)
Quarter: 2024Q1

REPORT INFORMATION
  Report Type: Spontaneous
  Country: CN (occurrence: CN)
  Receive Date: 20240209
  Receipt Date: 20240209
  Transmission Date: 20240410
  Serious: Yes (Other)
  Sender: FDA-Public Use
  Company Number: CN-JNJFOC-20240185633

PATIENT
  Sex: Male

DRUGS (1)
  1. RISPERDAL [Suspect]
     Active Substance: RISPERIDONE
     Indication: Product used for unknown indication
     Route: 065
     Dates: start: 2002, end: 2010

REACTIONS (7)
  - Suicide attempt [Unknown]
  - Mobility decreased [Unknown]
  - Social avoidant behaviour [Unknown]
  - Affect lability [Unknown]
  - Aphasia [Unknown]
  - Thought blocking [Unknown]
  - Incoherent [Unknown]
